FAERS Safety Report 4521259-6 (Version None)
Quarter: 2004Q4

REPORT INFORMATION
  Report Type: 
  Country: None (occurrence: None)
  Receive Date: 20041208
  Receipt Date: 20040617
  Transmission Date: 20050328
  Serious: Yes (Other)
  Sender: FDA-Public Use
  Company Number: US-GLAXOSMITHKLINE-A0515139A

PATIENT
  Age: 52 Year
  Sex: Female
  Weight: 74.5 kg

DRUGS (8)
  1. ZYBAN [Suspect]
     Indication: EX-SMOKER
     Dosage: 150MG TWICE PER DAY
     Route: 048
     Dates: start: 20000627, end: 20000727
  2. PREDNISONE [Concomitant]
  3. PREMARIN [Concomitant]
  4. MEDROXYPROGESTERONE [Concomitant]
  5. BENADRYL [Concomitant]
  6. MAXAIR [Concomitant]
  7. SEREVENT [Concomitant]
  8. AZMACORT [Concomitant]

REACTIONS (28)
  - ASTHENIA [None]
  - CHEST PAIN [None]
  - CHILLS [None]
  - COUGH [None]
  - DISORIENTATION [None]
  - DIZZINESS [None]
  - DYSPHAGIA [None]
  - FEELING ABNORMAL [None]
  - HEADACHE [None]
  - HYPERHIDROSIS [None]
  - ILL-DEFINED DISORDER [None]
  - INCREASED TENDENCY TO BRUISE [None]
  - MUCOUS MEMBRANE DISORDER [None]
  - MUSCLE ATROPHY [None]
  - MUSCLE CRAMP [None]
  - MUSCLE SPASMS [None]
  - MUSCULOSKELETAL DISORDER [None]
  - NAUSEA [None]
  - NERVOUSNESS [None]
  - PAIN OF SKIN [None]
  - PNEUMONITIS [None]
  - PRURITUS [None]
  - PYREXIA [None]
  - TONSILLAR CYST [None]
  - TREMOR [None]
  - URTICARIA [None]
  - VASODILATATION [None]
  - WHEEZING [None]
